FAERS Safety Report 11639816 (Version 1)
Quarter: 2015Q4

REPORT INFORMATION
  Report Type: Spontaneous
  Country: US (occurrence: US)
  Receive Date: 20151019
  Receipt Date: 20151019
  Transmission Date: 20160304
  Serious: Yes (Death)
  Sender: FDA-Public Use
  Company Number: US-BAYER-2015-443982

PATIENT
  Age: 85 Year
  Sex: Male
  Weight: 106.58 kg

DRUGS (1)
  1. MIRALAX [Suspect]
     Active Substance: POLYETHYLENE GLYCOL 3350
     Indication: CONSTIPATION
     Dosage: 1 DF, QD
     Route: 048

REACTIONS (3)
  - Wrong technique in product usage process [None]
  - Death [Fatal]
  - Intentional overdose [None]

NARRATIVE: CASE EVENT DATE: 20150209
